FAERS Safety Report 16352233 (Version 2)
Quarter: 2023Q1

REPORT INFORMATION
  Report Type: Spontaneous
  Country: FR (occurrence: FR)
  Receive Date: 20190524
  Receipt Date: 20230321
  Transmission Date: 20230418
  Serious: Yes (Hospitalization)
  Sender: FDA-Public Use
  Company Number: DE-PFIZER INC-2003112470

PATIENT

DRUGS (7)
  1. TAHOR [Suspect]
     Active Substance: ATORVASTATIN CALCIUM
     Indication: Ill-defined disorder
     Dosage: UNK
     Route: 048
  2. CELEBREX [Suspect]
     Active Substance: CELECOXIB
     Indication: Ill-defined disorder
     Dosage: UNK
     Route: 048
  3. GLYBURIDE [Suspect]
     Active Substance: GLYBURIDE
     Indication: Ill-defined disorder
     Dosage: UNK
     Route: 048
  4. GLUCOR [Suspect]
     Active Substance: ACARBOSE
     Indication: Ill-defined disorder
     Dosage: UNK
     Route: 065
  5. FELODIPINE [Suspect]
     Active Substance: FELODIPINE
     Indication: Ill-defined disorder
     Dosage: UNK
     Route: 048
  6. HYDROCHLOROTHIAZIDE\VALSARTAN [Suspect]
     Active Substance: HYDROCHLOROTHIAZIDE\VALSARTAN
     Indication: Ill-defined disorder
     Dosage: UNK
     Route: 048
  7. NITROGLYCERIN [Concomitant]
     Active Substance: NITROGLYCERIN
     Indication: Product used for unknown indication
     Dosage: UNK
     Route: 065

REACTIONS (2)
  - Angina pectoris [Recovered/Resolved]
  - Chest pain [Unknown]

NARRATIVE: CASE EVENT DATE: 20030225
